FAERS Safety Report 10749156 (Version 1)
Quarter: 2015Q1

REPORT INFORMATION
  Report Type: Spontaneous
  Country: US (occurrence: None)
  Receive Date: 20150128
  Receipt Date: 20150128
  Transmission Date: 20150721
  Serious: No
  Sender: FDA-Public Use
  Company Number: None

PATIENT
  Age: 62 Year
  Sex: Female
  Weight: 97.98 kg

DRUGS (1)
  1. REMERON [Suspect]
     Active Substance: MIRTAZAPINE
     Indication: BIPOLAR DISORDER
     Dosage: 1 PER DAY
     Route: 048
     Dates: start: 20140924, end: 20140929

REACTIONS (3)
  - Euphoric mood [None]
  - Mood altered [None]
  - Ageusia [None]

NARRATIVE: CASE EVENT DATE: 20140924
